FAERS Safety Report 9297640 (Version 2)
Quarter: 2013Q2

REPORT INFORMATION
  Report Type: Spontaneous
  Country: CH (occurrence: CH)
  Receive Date: 20130520
  Receipt Date: 20130528
  Transmission Date: 20140414
  Serious: Yes (Other)
  Sender: FDA-Public Use
  Company Number: CH-JNJFOC-20130506759

PATIENT
  Age: 86 Year
  Sex: Female

DRUGS (5)
  1. XARELTO [Suspect]
     Indication: CEREBROVASCULAR ACCIDENT PROPHYLAXIS
     Route: 048
     Dates: start: 20120606, end: 20130502
  2. XARELTO [Suspect]
     Indication: ATRIAL FIBRILLATION
     Route: 048
     Dates: start: 20120606, end: 20130502
  3. ELTROXIN [Concomitant]
     Route: 065
  4. AMIODARONE [Concomitant]
     Route: 065
  5. CALCIMAGON [Concomitant]
     Route: 065

REACTIONS (1)
  - Cerebrovascular accident [Unknown]
